FAERS Safety Report 9814939 (Version 2)
Quarter: 2014Q1

REPORT INFORMATION
  Report Type: Spontaneous
  Country: US (occurrence: US)
  Receive Date: 20140113
  Receipt Date: 20140123
  Transmission Date: 20141002
  Serious: No
  Sender: FDA-Public Use
  Company Number: US-PFIZER INC-2014004751

PATIENT
  Age: 63 Year
  Sex: Male
  Weight: 96 kg

DRUGS (7)
  1. TORISEL [Suspect]
     Indication: RENAL CELL CARCINOMA
     Dosage: 25 MG, WEEKLY
     Route: 042
     Dates: start: 20131014
  2. TORISEL [Suspect]
     Dosage: 20 MG, UNK
  3. BARIUM SULFATE [Suspect]
     Dosage: UNK
  4. SIMVASTATIN [Concomitant]
     Indication: BLOOD CHOLESTEROL ABNORMAL
     Dosage: 20 MG, 1X/DAY
  5. COUMADIN [Concomitant]
     Indication: ATRIAL FIBRILLATION
     Dosage: UNK (SPLITTING THE TABLET OF 5MG), 1X/DAY
  6. COREG [Concomitant]
     Indication: ATRIAL FIBRILLATION
     Dosage: UNK (SPLITTING THE TABLET OF 12.5MG), 1X/DAY
  7. BENADRYL [Concomitant]
     Indication: PREMEDICATION
     Dosage: 25 MG, UNK

REACTIONS (5)
  - Blood creatinine increased [Unknown]
  - Weight decreased [Unknown]
  - Platelet count decreased [Unknown]
  - Stomatitis [Recovering/Resolving]
  - Blood pH decreased [Recovering/Resolving]
